FAERS Safety Report 5967680-0 (Version None)
Quarter: 2008Q4

REPORT INFORMATION
  Report Type: 
  Country: None (occurrence: None)
  Receive Date: 20081126
  Receipt Date: 20081120
  Transmission Date: 20090506
  Serious: Yes (Other)
  Sender: FDA-Public Use
  Company Number: PHEH2008US10434

PATIENT
  Sex: Female

DRUGS (2)
  1. TEKTURNA [Suspect]
     Dosage: 300 MG, UNK
     Dates: start: 20081001
  2. DIGOXIN [Concomitant]
     Dosage: 0.125 MG, UNK

REACTIONS (6)
  - ARRHYTHMIA [None]
  - ASTHENIA [None]
  - DISORIENTATION [None]
  - DIZZINESS [None]
  - FEELING ABNORMAL [None]
  - HEADACHE [None]
